FAERS Safety Report 5355143-5 (Version None)
Quarter: 2007Q2

REPORT INFORMATION
  Report Type: 
  Country: None (occurrence: None)
  Receive Date: 20070611
  Receipt Date: 20070508
  Transmission Date: 20071010
  Serious: Yes (Other)
  Sender: FDA-Public Use
  Company Number: WAES 0706ESP00014

PATIENT
  Age: 63 Year
  Sex: Female

DRUGS (2)
  1. MEVACOR [Suspect]
     Dosage: PO
     Route: 048
  2. GEMFIBROZIL [Suspect]

REACTIONS (3)
  - CHOLESTASIS [None]
  - DRUG INTERACTION [None]
  - HEPATOCELLULAR DAMAGE [None]
